FAERS Safety Report 5120369-2 (Version None)
Quarter: 2006Q4

REPORT INFORMATION
  Report Type: 
  Country: None (occurrence: None)
  Receive Date: 20061002
  Receipt Date: 20060919
  Transmission Date: 20070319
  Serious: Yes (Death, Other)
  Sender: FDA-Public Use
  Company Number: GB200609004550

PATIENT
  Age: 21 Year
  Sex: Male

DRUGS (6)
  1. OLANZAPINE [Suspect]
     Indication: BIPOLAR I DISORDER
     Dosage: 2.5 MG, DAILY (1/D),
     Dates: start: 20040501
  2. LITHIUM CARBONATE [Concomitant]
  3. VALPROATE SODIUM [Concomitant]
  4. DIPROBASE OINTMENT (PARAFFIN, LIQUID, WHITE SOFT PARAFFIN) [Concomitant]
  5. LACTULOSE [Concomitant]
  6. OILATUM 1 (PARAFFIN, LIQUID, WOOL FAT) [Concomitant]

REACTIONS (5)
  - GLOMERULOSCLEROSIS [None]
  - PERICARDITIS [None]
  - PLEURAL EFFUSION [None]
  - PNEUMONITIS [None]
  - RENAL FAILURE CHRONIC [None]
